FAERS Safety Report 8803998 (Version 1)
Quarter: 2012Q4

REPORT INFORMATION
  Report Type: 
  Country: FI (occurrence: FI)
  Receive Date: 20120923
  Receipt Date: 20120923
  Transmission Date: 20130627
  Serious: Yes (Hospitalization)
  Sender: FDA-Public Use
  Company Number: FI-ABBOTT-12P-055-0952935-00

PATIENT
  Age: 39 Year
  Sex: Female

DRUGS (7)
  1. CIPRALEX [Suspect]
     Indication: DEPRESSION
     Route: 048
     Dates: start: 20120509, end: 20120515
  2. CIPRALEX [Suspect]
     Route: 048
     Dates: start: 20120619
  3. CIPRALEX [Suspect]
     Route: 048
     Dates: start: 201206, end: 20120724
  4. ATACAND [Suspect]
     Indication: HYPERTENSION
     Route: 048
     Dates: start: 2007
  5. ACICLOVIR [Concomitant]
     Indication: HERPES SIMPLEX
     Dosage: A
     Route: 048
     Dates: start: 20120310
  6. PROGYNOVA [Concomitant]
     Indication: ENDOMETRIOSIS
     Route: 048
  7. NEXIUM [Concomitant]
     Indication: GASTROINTESTINAL DISORDER
     Dosage: A
     Route: 048

REACTIONS (4)
  - Deafness unilateral [Recovered/Resolved]
  - Vertigo [Recovered/Resolved]
  - Nausea [Recovered/Resolved]
  - Vertigo positional [Recovered/Resolved]
